FAERS Safety Report 20562428 (Version 1)
Quarter: 2022Q1

REPORT INFORMATION
  Report Type: Spontaneous
  Country: CA (occurrence: CA)
  Receive Date: 20220307
  Receipt Date: 20220307
  Transmission Date: 20220423
  Serious: Yes (Other)
  Sender: FDA-Public Use
  Company Number: CA-OTSUKA-2022_010237

PATIENT
  Age: 40 Year
  Sex: Male

DRUGS (1)
  1. REXULTI [Suspect]
     Active Substance: BREXPIPRAZOLE
     Indication: Product used for unknown indication
     Dosage: 1.5 MG
     Route: 065

REACTIONS (2)
  - Hallucination, auditory [Unknown]
  - Glomerular filtration rate decreased [Not Recovered/Not Resolved]
